FAERS Safety Report 6399020-X (Version None)
Quarter: 2009Q4

REPORT INFORMATION
  Report Type: 
  Country: None (occurrence: None)
  Receive Date: 20091008
  Receipt Date: 20091008
  Transmission Date: 20100525
  Serious: Yes (Disabling, Other)
  Sender: FDA-Public Use
  Company Number: None

PATIENT
  Age: 52 Year
  Sex: Male
  Weight: 103.4201 kg

DRUGS (1)
  1. ATENOLOL [Suspect]
     Indication: BLOOD PRESSURE INCREASED
     Dosage: 1/2 TABLET ORALLY DAILY EVE PO
     Route: 048
     Dates: start: 20091003, end: 20091005

REACTIONS (9)
  - ALOPECIA [None]
  - ARTHRALGIA [None]
  - FEELING COLD [None]
  - JOINT SWELLING [None]
  - OEDEMA PERIPHERAL [None]
  - PAIN IN EXTREMITY [None]
  - POLLAKIURIA [None]
  - SKIN DISCOLOURATION [None]
  - THIRST [None]
